FAERS Safety Report 7007265-0 (Version None)
Quarter: 2010Q3

REPORT INFORMATION
  Report Type: 
  Country: None (occurrence: None)
  Receive Date: 20100922
  Receipt Date: 20100909
  Transmission Date: 20110219
  Serious: Yes (Other)
  Sender: FDA-Public Use
  Company Number: PHHY2010US60487

PATIENT
  Age: 52 Year
  Sex: Female

DRUGS (2)
  1. DIOVAN HCT [Suspect]
     Dosage: 160/12.5 MG, 2.5 YEARS
  2. OXYMORPHONE [Concomitant]
     Dosage: 40 MG, UNK

REACTIONS (3)
  - ARTHRALGIA [None]
  - SURGERY [None]
  - TREATMENT NONCOMPLIANCE [None]
